FAERS Safety Report 5512635-3 (Version None)
Quarter: 2007Q4

REPORT INFORMATION
  Report Type: 
  Country: None (occurrence: None)
  Receive Date: 20071108
  Receipt Date: 20071108
  Transmission Date: 20080405
  Serious: No
  Sender: FDA-Public Use
  Company Number: None

PATIENT
  Sex: Female
  Weight: 127.0072 kg

DRUGS (2)
  1. MELOXICAM [Suspect]
     Indication: ARTHRITIS
     Dosage: 15 MG 1 A DAY PO
     Route: 048
     Dates: start: 20070928, end: 20071028
  2. MELOXICAM [Suspect]
     Indication: BACK PAIN
     Dosage: 15 MG 1 A DAY PO
     Route: 048
     Dates: start: 20070928, end: 20071028

REACTIONS (4)
  - DRUG INEFFECTIVE [None]
  - PHARMACEUTICAL PRODUCT COMPLAINT [None]
  - POOR QUALITY DRUG ADMINISTERED [None]
  - THERAPEUTIC RESPONSE UNEXPECTED WITH DRUG SUBSTITUTION [None]
